FAERS Safety Report 15511947 (Version 1)
Quarter: 2018Q4

REPORT INFORMATION
  Report Type: Spontaneous
  Country: US (occurrence: US)
  Receive Date: 20181010
  Receipt Date: 20181010
  Transmission Date: 20190205
  Serious: No
  Sender: FDA-Public Use
  Company Number: None

PATIENT
  Age: 51 Year
  Sex: Female

DRUGS (1)
  1. TECFIDERA [Suspect]
     Active Substance: DIMETHYL FUMARATE
     Indication: MULTIPLE SCLEROSIS
     Dosage: 1 CAPSULE TWICE DAILY BY MOUTH
     Route: 048
     Dates: start: 201808

REACTIONS (3)
  - Abdominal discomfort [None]
  - Flushing [None]
  - Nausea [None]

NARRATIVE: CASE EVENT DATE: 201808
